FAERS Safety Report 5276272-0 (Version None)
Quarter: 2007Q1

REPORT INFORMATION
  Report Type: 
  Country: None (occurrence: None)
  Receive Date: 20070326
  Receipt Date: 20070314
  Transmission Date: 20070707
  Serious: Yes (Hospitalization, Other)
  Sender: FDA-Public Use
  Company Number: US-PFIZER INC-2007009076

PATIENT
  Age: 27 Year
  Sex: Female
  Weight: 145.2 kg

DRUGS (6)
  1. GEODON [Suspect]
     Indication: BIPOLAR DISORDER
     Dates: start: 20061108, end: 20061101
  2. LAMICTAL [Interacting]
     Indication: BIPOLAR DISORDER
     Route: 048
     Dates: start: 20051001, end: 20061124
  3. ABILIFY [Interacting]
     Indication: BIPOLAR DISORDER
     Dates: start: 20061031, end: 20061101
  4. ALL OTHER THERAPEUTIC PRODUCTS [Concomitant]
  5. ORAL CONTRACEPTIVE NOS [Concomitant]
  6. CLONIDINE [Concomitant]
     Dates: start: 20060530, end: 20061101

REACTIONS (7)
  - ABDOMINAL DISCOMFORT [None]
  - CHOLESTASIS [None]
  - CHROMATURIA [None]
  - DRUG INTERACTION [None]
  - HEPATITIS TOXIC [None]
  - PRURITUS [None]
  - RASH MACULO-PAPULAR [None]
